FAERS Safety Report 10680995 (Version 1)
Quarter: 2014Q4

REPORT INFORMATION
  Report Type: Report from Study
  Country: US (occurrence: US)
  Receive Date: 20141229
  Receipt Date: 20141229
  Transmission Date: 20150529
  Serious: Yes (Hospitalization)
  Sender: FDA-Public Use
  Company Number: US-GILEAD-2014-0128104

PATIENT
  Age: 64 Year
  Sex: Female

DRUGS (1)
  1. AZTREONAM LYSINE [Suspect]
     Active Substance: AZTREONAM LYSINE
     Indication: PSEUDOMONAS INFECTION
     Dosage: 75 MG, TID
     Route: 055

REACTIONS (4)
  - Bronchial secretion retention [Recovering/Resolving]
  - Lung disorder [Recovering/Resolving]
  - Sinus disorder [Recovering/Resolving]
  - Dyspnoea [Recovering/Resolving]
